FAERS Safety Report 7894470-4 (Version None)
Quarter: 2011Q4

REPORT INFORMATION
  Report Type: 
  Country: None (occurrence: None)
  Receive Date: 20111106
  Receipt Date: 20110816
  Transmission Date: 20120403
  Serious: No
  Sender: FDA-Public Use
  Company Number: US-AMGEN-USASP2011033200

PATIENT
  Age: 63 Year
  Sex: Female

DRUGS (1)
  1. ENBREL [Suspect]
     Indication: RHEUMATOID ARTHRITIS
     Dosage: 50 MG, QWK
     Dates: start: 20110603

REACTIONS (19)
  - FEELING COLD [None]
  - INSOMNIA [None]
  - INJECTION SITE ERYTHEMA [None]
  - DYSPNOEA EXERTIONAL [None]
  - INJECTION SITE INDURATION [None]
  - JOINT SWELLING [None]
  - MUSCLE TIGHTNESS [None]
  - EYE SWELLING [None]
  - SWELLING FACE [None]
  - ABDOMINAL RIGIDITY [None]
  - PAIN [None]
  - OEDEMA PERIPHERAL [None]
  - LOCAL SWELLING [None]
  - ABDOMINAL DISTENSION [None]
  - INJECTION SITE PRURITUS [None]
  - DIARRHOEA [None]
  - INJECTION SITE WARMTH [None]
  - HEADACHE [None]
  - PYREXIA [None]
